FAERS Safety Report 13346709 (Version 1)
Quarter: 2017Q1

REPORT INFORMATION
  Report Type: Spontaneous
  Country: MY (occurrence: MY)
  Receive Date: 20170317
  Receipt Date: 20170317
  Transmission Date: 20170428
  Serious: Yes (Other)
  Sender: FDA-Public Use
  Company Number: MY-MYLANLABS-2017M1016460

PATIENT

DRUGS (1)
  1. TENOFOVIR [Suspect]
     Active Substance: TENOFOVIR
     Indication: CHRONIC HEPATITIS B
     Route: 065
     Dates: start: 2014

REACTIONS (3)
  - Osteomalacia [Recovered/Resolved]
  - Bone density decreased [Recovered/Resolved]
  - Vitamin D deficiency [Recovered/Resolved]
